FAERS Safety Report 25523896 (Version 2)
Quarter: 2025Q3

REPORT INFORMATION
  Report Type: Spontaneous
  Country: US (occurrence: US)
  Receive Date: 20250707
  Receipt Date: 20250816
  Transmission Date: 20251020
  Serious: No
  Sender: ALEXION PHARMACEUTICALS
  Company Number: US-AstraZeneca-CH-00902319A

PATIENT
  Sex: Male

DRUGS (2)
  1. FARXIGA [Suspect]
     Active Substance: DAPAGLIFLOZIN PROPANEDIOL
     Dosage: 5 MILLIGRAM, QD
     Route: 065
     Dates: start: 202410
  2. METFORMIN [Concomitant]
     Active Substance: METFORMIN HYDROCHLORIDE
     Route: 065

REACTIONS (7)
  - Blood sodium decreased [Unknown]
  - Renal disorder [Unknown]
  - Micturition urgency [Unknown]
  - Nervous system disorder [Unknown]
  - Hypotension [Unknown]
  - Blood pressure diastolic decreased [Unknown]
  - Blood pressure fluctuation [Unknown]
